FAERS Safety Report 6003930-2 (Version None)
Quarter: 2008Q4

REPORT INFORMATION
  Report Type: 
  Country: None (occurrence: None)
  Receive Date: 20081216
  Receipt Date: 20081204
  Transmission Date: 20090506
  Serious: Yes (Death, Other)
  Sender: FDA-Public Use
  Company Number: US-PFIZER INC-2008093492

PATIENT
  Sex: Female
  Weight: 123 kg

DRUGS (4)
  1. PREDNISONE [Suspect]
     Route: 048
     Dates: start: 20040701
  2. ALL OTHER THERAPEUTIC PRODUCTS [Suspect]
     Indication: IDIOPATHIC THROMBOCYTOPENIC PURPURA
     Route: 058
     Dates: start: 20080909, end: 20080930
  3. OXYCODONE HCL [Concomitant]
     Route: 048
  4. HYDROCODONE BITARTRATE + ACETAMINOPHEN [Concomitant]
     Route: 048

REACTIONS (8)
  - ABDOMINAL PAIN [None]
  - DEEP VEIN THROMBOSIS [None]
  - DRUG INEFFECTIVE [None]
  - HAEMATEMESIS [None]
  - HYDRONEPHROSIS [None]
  - INTRAVENTRICULAR HAEMORRHAGE [None]
  - OSTEONECROSIS [None]
  - SMALL INTESTINAL HAEMORRHAGE [None]
